FAERS Safety Report 5431029-2 (Version None)
Quarter: 2007Q3

REPORT INFORMATION
  Report Type: 
  Country: None (occurrence: None)
  Receive Date: 20070830
  Receipt Date: 20070823
  Transmission Date: 20080115
  Serious: Yes (Hospitalization)
  Sender: FDA-Public Use
  Company Number: US-KINGPHARMUSA00001-K200701081

PATIENT

DRUGS (15)
  1. ALTACE [Suspect]
     Indication: HYPERTENSION
     Dosage: 25 MG, QD
     Route: 048
     Dates: start: 20061105, end: 20061105
  2. COREG [Suspect]
     Indication: CARDIAC FAILURE CONGESTIVE
     Dosage: 3.125 MG, BID
     Route: 048
     Dates: start: 20061105, end: 20061105
  3. CANGRELOR VS PLACEBO (CODE NOT BROKEN) INJECTION [Suspect]
     Dosage: 3 ML, UNK
     Route: 042
     Dates: start: 20061103, end: 20061103
  4. CANGRELOR VS PLACEBO (CODE NOT BROKEN) INJECTION [Suspect]
     Dosage: 42.48 ML, SINGLE
     Route: 042
     Dates: start: 20061103, end: 20061103
  5. CLOPIDOGREL VS PLACEBO (CLOPIDOGREL) ORAL DRUG [Suspect]
     Dosage: 4 CAPSULES, SINGLE
     Route: 048
     Dates: start: 20061103, end: 20061103
  6. CLOPIDOGREL VS PLACEBO (CLOPIDOGREL) ORAL DRUG [Suspect]
     Dosage: 4 CAPSULES, SINGLE
     Route: 048
     Dates: start: 20061103, end: 20061103
  7. HEPARIN [Concomitant]
     Dates: start: 20061104, end: 20061109
  8. EPTIFIBATIDE [Concomitant]
  9. HYDROMORPHONE HCL [Concomitant]
     Dates: start: 20061103, end: 20061103
  10. MAGNESIUM SULFATE [Concomitant]
     Dates: start: 20061104, end: 20061104
  11. ONDANSETRON [Concomitant]
     Dates: start: 20061103, end: 20061110
  12. PANTOPRAZOLE SODIUM [Concomitant]
     Dates: start: 20061103, end: 20061110
  13. CLOPIDOGREL [Concomitant]
     Dates: start: 20061104
  14. SIMVASTATIN [Concomitant]
     Dates: start: 20061103
  15. ASPIRIN [Concomitant]
     Dates: start: 20061104

REACTIONS (3)
  - BLOOD PRESSURE SYSTOLIC DECREASED [None]
  - DYSPNOEA [None]
  - HYPOTENSION [None]
